FAERS Safety Report 17779970 (Version 1)
Quarter: 2020Q2

REPORT INFORMATION
  Report Type: Spontaneous
  Country: US (occurrence: US)
  Receive Date: 20200514
  Receipt Date: 20200514
  Transmission Date: 20200714
  Serious: No
  Sender: FDA-Public Use
  Company Number: US-GW PHARMA-202005USGW01691

PATIENT

DRUGS (4)
  1. TOPIRAMATE. [Interacting]
     Active Substance: TOPIRAMATE
     Indication: SEIZURE
     Dosage: UNK
     Route: 065
  2. EPIDIOLEX [Suspect]
     Active Substance: CANNABIDIOL
     Indication: EPILEPSY
     Dosage: UNK
     Route: 048
  3. GUANFACINE. [Interacting]
     Active Substance: GUANFACINE
     Indication: IMPULSIVE BEHAVIOUR
     Dosage: UNKNOWN DOSE
     Route: 065
  4. GUANFACINE. [Interacting]
     Active Substance: GUANFACINE
     Indication: PSYCHOMOTOR HYPERACTIVITY
     Dosage: DOSE REDUCED BY 50%
     Route: 065

REACTIONS (3)
  - Sedation [Recovered/Resolved]
  - Drug interaction [Unknown]
  - Fatigue [Recovered/Resolved]
